FAERS Safety Report 5753303-2 (Version None)
Quarter: 2008Q2

REPORT INFORMATION
  Report Type: 
  Country: None (occurrence: None)
  Receive Date: 20080530
  Receipt Date: 20080124
  Transmission Date: 20081010
  Serious: No
  Sender: FDA-Public Use
  Company Number: A0698583A

PATIENT
  Age: 66 Year
  Sex: Male

DRUGS (2)
  1. VENTOLIN [Suspect]
     Route: 055
     Dates: start: 20020101
  2. PREVACID [Concomitant]

REACTIONS (2)
  - DRUG INEFFECTIVE [None]
  - PHARMACEUTICAL PRODUCT COMPLAINT [None]
